FAERS Safety Report 12399773 (Version 7)
Quarter: 2017Q1

REPORT INFORMATION
  Report Type: Spontaneous
  Country: US (occurrence: US)
  Receive Date: 20160524
  Receipt Date: 20170130
  Transmission Date: 20170428
  Serious: No
  Sender: FDA-Public Use
  Company Number: US-ACTELION-A-NJ2016-133989

PATIENT
  Age: 45 Year
  Sex: Female
  Weight: 52.97 kg

DRUGS (8)
  1. UPTRAVI [Suspect]
     Active Substance: SELEXIPAG
     Indication: PULMONARY HYPERTENSION
     Dosage: 200 MCG, BID
     Route: 048
     Dates: start: 20160329
  2. UPTRAVI [Suspect]
     Active Substance: SELEXIPAG
     Dosage: 600 MCG
     Route: 048
     Dates: start: 20160329
  3. SILDENAFIL. [Concomitant]
     Active Substance: SILDENAFIL
  4. DILTIAZEM. [Concomitant]
     Active Substance: DILTIAZEM
  5. LETAIRIS [Concomitant]
     Active Substance: AMBRISENTAN
  6. UPTRAVI [Suspect]
     Active Substance: SELEXIPAG
     Dosage: 400 MCG, BID
     Route: 048
     Dates: start: 20160329
  7. UPTRAVI [Suspect]
     Active Substance: SELEXIPAG
     Dosage: 200 MCG, BID
     Route: 048
  8. COUMADIN [Concomitant]
     Active Substance: WARFARIN SODIUM

REACTIONS (9)
  - Pain in extremity [Unknown]
  - Insomnia [Unknown]
  - Paranasal sinus discomfort [Unknown]
  - Myalgia [Unknown]
  - Seasonal allergy [Unknown]
  - Oedema peripheral [Unknown]
  - Urinary tract infection [Unknown]
  - Pain [Unknown]
  - Headache [Unknown]
